FAERS Safety Report 13521977 (Version 1)
Quarter: 2017Q2

REPORT INFORMATION
  Report Type: Spontaneous
  Country: IT (occurrence: IT)
  Receive Date: 20170508
  Receipt Date: 20170508
  Transmission Date: 20170830
  Serious: Yes (Other)
  Sender: FDA-Public Use
  Company Number: IT-TOLMAR, INC.-2017IT005594

PATIENT
  Age: 75 Year
  Sex: Male

DRUGS (2)
  1. ELIGARD [Suspect]
     Active Substance: LEUPROLIDE ACETATE
     Indication: ANDROGEN THERAPY
     Dosage: UNK, UNK
     Route: 065
  2. BICALUTAMIDE. [Suspect]
     Active Substance: BICALUTAMIDE
     Indication: ANDROGEN THERAPY
     Dosage: UNK, UNK
     Route: 065

REACTIONS (5)
  - Metastases to lymph nodes [Unknown]
  - Prostatic specific antigen increased [Unknown]
  - General physical health deterioration [Unknown]
  - Metastases to bone [Unknown]
  - Fatigue [Unknown]

NARRATIVE: CASE EVENT DATE: 201201
